FAERS Safety Report 24853614 (Version 3)
Quarter: 2025Q1

REPORT INFORMATION
  Report Type: Spontaneous
  Country: DE (occurrence: DE)
  Receive Date: 20250117
  Receipt Date: 20250325
  Transmission Date: 20250408
  Serious: Yes (Other)
  Sender: BIOGEN
  Company Number: DE-BIOGEN-2024BI01289584

PATIENT
  Age: 53 Year
  Sex: Female

DRUGS (4)
  1. AVONEX [Suspect]
     Active Substance: INTERFERON BETA-1A
     Indication: Multiple sclerosis
     Route: 050
     Dates: start: 2006, end: 20241127
  2. AVONEX [Suspect]
     Active Substance: INTERFERON BETA-1A
  3. AVONEX [Suspect]
     Active Substance: INTERFERON BETA-1A
  4. AVONEX [Suspect]
     Active Substance: INTERFERON BETA-1A

REACTIONS (8)
  - Malignant melanoma [Not Recovered/Not Resolved]
  - Myelodysplastic syndrome [Unknown]
  - Bicytopenia [Unknown]
  - Gastritis erosive [Unknown]
  - Large intestine polyp [Unknown]
  - Rectal polyp [Unknown]
  - Cryoglobulins present [Unknown]
  - Fatigue [Unknown]

NARRATIVE: CASE EVENT DATE: 20240801
